FAERS Safety Report 7807487-2 (Version None)
Quarter: 2011Q4

REPORT INFORMATION
  Report Type: 
  Country: None (occurrence: None)
  Receive Date: 20111011
  Receipt Date: 20111004
  Transmission Date: 20120403
  Serious: Yes (Life-Threatening, Hospitalization)
  Sender: FDA-Public Use
  Company Number: PHHY2011FR85428

PATIENT
  Sex: Male
  Weight: 76 kg

DRUGS (14)
  1. LASIX [Concomitant]
  2. PREVISCAN [Concomitant]
     Dosage: 5 MG, UNK
  3. ESOMEPRAZOLE SODIUM [Concomitant]
  4. CLOZAPINE [Suspect]
     Dosage: 200 MG, TID
  5. TERCIAN [Concomitant]
  6. CHLORPROMAZINE HCL [Concomitant]
  7. RAMIPRIL [Concomitant]
  8. LORAZEPAM [Concomitant]
     Dosage: 2 DF, TID
  9. ALDACTONE [Concomitant]
  10. BISOPROLOL FUMARATE [Concomitant]
  11. DESLORATADINE [Concomitant]
     Dosage: 5 MG, UNK
  12. BENZODIAZEPINES [Concomitant]
  13. DEPAKENE [Concomitant]
     Dosage: 1 DF, BID
  14. POTASSIUM CHLORIDE [Concomitant]

REACTIONS (26)
  - CARDIAC DISORDER [None]
  - TACHYCARDIA [None]
  - CELL DEATH [None]
  - GENERALISED OEDEMA [None]
  - CARDIAC FAILURE [None]
  - EJECTION FRACTION DECREASED [None]
  - C-REACTIVE PROTEIN INCREASED [None]
  - HEPATOMEGALY [None]
  - PERICARDIAL EFFUSION [None]
  - CARDIAC CIRRHOSIS [None]
  - CARDIOMEGALY [None]
  - DYSPNOEA [None]
  - INFLAMMATION [None]
  - LEFT VENTRICULAR HYPERTROPHY [None]
  - TACHYPNOEA [None]
  - ANXIETY [None]
  - CHEST PAIN [None]
  - PULMONARY HYPERTENSION [None]
  - THROMBOCYTOPENIA [None]
  - RASH [None]
  - DISSEMINATED INTRAVASCULAR COAGULATION [None]
  - ISCHAEMIC HEPATITIS [None]
  - CARDIOMYOPATHY [None]
  - CARDIAC OUTPUT DECREASED [None]
  - LEFT VENTRICULAR END-DIASTOLIC PRESSURE INCREASED [None]
  - SCHIZOPHRENIA [None]
